FAERS Safety Report 24986300 (Version 1)
Quarter: 2025Q1

REPORT INFORMATION
  Report Type: Spontaneous
  Country: US (occurrence: US)
  Receive Date: 20250219
  Receipt Date: 20250219
  Transmission Date: 20250409
  Serious: Yes (Death, Life-Threatening, Other)
  Sender: ENDO
  Company Number: US-ENDO USA, INC.-2025-000352

PATIENT
  Age: 11 Year
  Sex: Female

DRUGS (5)
  1. IBUPROFEN [Suspect]
     Active Substance: IBUPROFEN
     Indication: Headache
     Route: 048
  2. WATER [Suspect]
     Active Substance: WATER
     Indication: Product used for unknown indication
     Route: 048
  3. HYDROXYZINE [Suspect]
     Active Substance: HYDROXYZINE HYDROCHLORIDE
     Indication: Headache
     Route: 048
  4. SERTRALINE [Suspect]
     Active Substance: SERTRALINE HYDROCHLORIDE
     Indication: Headache
     Route: 048
  5. ACETAMINOPHEN [Suspect]
     Active Substance: ACETAMINOPHEN
     Indication: Headache
     Route: 048

REACTIONS (15)
  - Medication error [Fatal]
  - Brain death [Fatal]
  - Blood pressure decreased [Unknown]
  - Brain oedema [Unknown]
  - Diabetes insipidus [Unknown]
  - Electrocardiogram QT prolonged [Unknown]
  - Hyponatraemia [Recovered/Resolved]
  - Hypoxia [Unknown]
  - Intracranial pressure increased [Unknown]
  - Mydriasis [Unknown]
  - Seizure [Unknown]
  - Confusional state [Unknown]
  - Hallucination [Unknown]
  - Aggression [Unknown]
  - Vomiting [Unknown]

NARRATIVE: CASE EVENT DATE: 20230101
